FAERS Safety Report 13416953 (Version 1)
Quarter: 2017Q2

REPORT INFORMATION
  Report Type: Spontaneous
  Country: GB (occurrence: GB)
  Receive Date: 20170407
  Receipt Date: 20170407
  Transmission Date: 20170830
  Serious: Yes (Hospitalization)
  Sender: FDA-Public Use
  Company Number: GB-IPCA LABORATORIES LIMITED-IPC201703-000384

PATIENT
  Age: 34 Year
  Sex: Female
  Weight: 60.5 kg

DRUGS (25)
  1. SENNA [Concomitant]
     Active Substance: SENNA LEAF\SENNOSIDES\SENNOSIDES A AND B
  2. POTASSIUM [Concomitant]
     Active Substance: POTASSIUM
     Route: 051
  3. LINEZOLID. [Concomitant]
     Active Substance: LINEZOLID
  4. ATENOLOL. [Concomitant]
     Active Substance: ATENOLOL
  5. GENTAMICIN. [Concomitant]
     Active Substance: GENTAMICIN
  6. LACTULOSE. [Concomitant]
     Active Substance: LACTULOSE
  7. DAPTOMYCIN. [Concomitant]
     Active Substance: DAPTOMYCIN
  8. VANCOMYCIN [Concomitant]
     Active Substance: VANCOMYCIN
  9. RAMIPRIL. [Concomitant]
     Active Substance: RAMIPRIL
  10. OMEPRAZOLE. [Concomitant]
     Active Substance: OMEPRAZOLE
  11. FUROSEMIDE. [Suspect]
     Active Substance: FUROSEMIDE
  12. ENOXAPARIN [Concomitant]
     Active Substance: ENOXAPARIN
     Route: 058
  13. FOLIC ACID. [Concomitant]
     Active Substance: FOLIC ACID
  14. SELENIUM [Concomitant]
     Active Substance: SELENIUM
  15. DOMPERIDONE [Concomitant]
     Active Substance: DOMPERIDONE
  16. SODIUM [Concomitant]
     Active Substance: SODIUM
     Route: 051
  17. PARACETAMOL [Suspect]
     Active Substance: ACETAMINOPHEN
  18. ERYTHROPOIETIN [Concomitant]
     Active Substance: ERYTHROPOIETIN
  19. ACETATE [Concomitant]
     Route: 051
  20. MEROPENEM. [Concomitant]
     Active Substance: MEROPENEM
  21. ANIDULAFUNGIN [Concomitant]
     Active Substance: ANIDULAFUNGIN
  22. SODIUM BICARBONATE. [Suspect]
     Active Substance: SODIUM BICARBONATE
  23. AMLODIPINE [Concomitant]
     Active Substance: AMLODIPINE BESYLATE
     Route: 048
  24. METRONIDAZOLE. [Concomitant]
     Active Substance: METRONIDAZOLE
     Route: 042
  25. FLUCONAZOLE. [Concomitant]
     Active Substance: FLUCONAZOLE

REACTIONS (1)
  - Metabolic alkalosis [Unknown]
